FAERS Safety Report 8997796 (Version 2)
Quarter: 2014Q1

REPORT INFORMATION
  Report Type: Spontaneous
  Country: US (occurrence: US)
  Receive Date: 20130104
  Receipt Date: 20140324
  Transmission Date: 20141002
  Serious: Yes (Other)
  Sender: FDA-Public Use
  Company Number: US-ROCHE-1176715

PATIENT
  Age: 20 Year
  Sex: Female
  Weight: 54.93 kg

DRUGS (5)
  1. ACCUTANE [Suspect]
     Indication: ACNE
     Route: 065
     Dates: start: 2008, end: 2009
  2. AMNESTEEM [Suspect]
     Indication: ACNE
     Route: 065
     Dates: start: 200905, end: 200907
  3. AMNESTEEM [Suspect]
     Indication: ALOPECIA SCARRING
  4. SOTRET [Suspect]
     Indication: ACNE
     Route: 065
     Dates: start: 200801, end: 200802
  5. SOTRET [Suspect]
     Indication: ALOPECIA SCARRING
     Route: 065
     Dates: start: 200809, end: 200810

REACTIONS (9)
  - Colitis ulcerative [Unknown]
  - Injury [Unknown]
  - Depression [Unknown]
  - Rectal haemorrhage [Unknown]
  - Blood cholesterol increased [Unknown]
  - Lip dry [Unknown]
  - Blood triglycerides increased [Unknown]
  - Pruritus [Unknown]
  - Rash [Unknown]
